FAERS Safety Report 6741073-0 (Version None)
Quarter: 2010Q2

REPORT INFORMATION
  Report Type: 
  Country: None (occurrence: None)
  Receive Date: 20100525
  Receipt Date: 20100525
  Transmission Date: 20101027
  Serious: No
  Sender: FDA-Public Use
  Company Number: None

PATIENT
  Age: 54 Year
  Sex: Female
  Weight: 94.8018 kg

DRUGS (1)
  1. AUGMENTIN [Suspect]
     Indication: OROPHARYNGEAL PAIN
     Dosage: 14 TABLETS TWIC DAILY PO
     Route: 048
     Dates: start: 20100507, end: 20100514

REACTIONS (5)
  - HEADACHE [None]
  - MOVEMENT DISORDER [None]
  - MUSCULOSKELETAL STIFFNESS [None]
  - NO THERAPEUTIC RESPONSE [None]
  - PAIN [None]
